FAERS Safety Report 8486018-0 (Version None)
Quarter: 2012Q3

REPORT INFORMATION
  Report Type: 
  Country: None (occurrence: None)
  Receive Date: 20120703
  Receipt Date: 20120629
  Transmission Date: 20120928
  Serious: Yes (Hospitalization)
  Sender: FDA-Public Use
  Company Number: 2012SP001773

PATIENT
  Age: 45 Year
  Sex: Male

DRUGS (3)
  1. LEXAPRO [Concomitant]
     Indication: PRODUCT USED FOR UNKNOWN INDICATION
     Dates: start: 20050610
  2. LATUDA [Suspect]
     Indication: PRODUCT USED FOR UNKNOWN INDICATION
     Route: 048
     Dates: start: 20120614, end: 20120620
  3. ZYPREXA [Concomitant]
     Indication: PRODUCT USED FOR UNKNOWN INDICATION
     Dates: start: 20090821

REACTIONS (8)
  - CHEST PAIN [None]
  - GAIT DISTURBANCE [None]
  - TONGUE DISORDER [None]
  - SPEECH DISORDER [None]
  - NAUSEA [None]
  - MUSCULOSKELETAL STIFFNESS [None]
  - HALLUCINATION, AUDITORY [None]
  - CONFUSIONAL STATE [None]
